FAERS Safety Report 4898363-6 (Version None)
Quarter: 2006Q1

REPORT INFORMATION
  Report Type: 
  Country: None (occurrence: None)
  Receive Date: 20060131
  Receipt Date: 20060131
  Transmission Date: 20060701
  Serious: Yes (Disabling)
  Sender: FDA-Public Use
  Company Number: None

PATIENT
  Age: 61 Year
  Sex: Male
  Weight: 86.1834 kg

DRUGS (1)
  1. EFUDEX [Suspect]
     Indication: PRECANCEROUS CELLS PRESENT
     Dosage: APPLY MORNING AND NIGHT TOPICALLY
     Route: 061

REACTIONS (4)
  - EYE DISORDER [None]
  - GLAUCOMA [None]
  - OCULAR HYPERAEMIA [None]
  - THERAPY NON-RESPONDER [None]
